FAERS Safety Report 6079746-8 (Version None)
Quarter: 2009Q1

REPORT INFORMATION
  Report Type: 
  Country: None (occurrence: None)
  Receive Date: 20090212
  Receipt Date: 20090130
  Transmission Date: 20090719
  Serious: Yes (Death)
  Sender: FDA-Public Use
  Company Number: A-CH2009-23678

PATIENT
  Age: 50 Year
  Sex: Female

DRUGS (8)
  1. TRACLEER [Suspect]
     Indication: PULMONARY ARTERIAL HYPERTENSION
     Dosage: 250 MG, BID, ORAL, 62.5 MG, BID, ORAL
     Route: 048
     Dates: end: 20070301
  2. TRACLEER [Suspect]
     Indication: PULMONARY ARTERIAL HYPERTENSION
     Dosage: 250 MG, BID, ORAL, 62.5 MG, BID, ORAL
     Route: 048
     Dates: start: 20070401, end: 20070522
  3. IMATINIB MESYLATE [Suspect]
     Dates: end: 20070522
  4. PROPYLTHIOURACIL [Suspect]
     Dates: end: 20070522
  5. DIURETICS [Concomitant]
  6. SILDENAFIL TABLET [Concomitant]
  7. ILOPROST [Concomitant]
  8. ANTITHROMBOTIC AGENTS [Concomitant]

REACTIONS (9)
  - CARDIOMEGALY [None]
  - CATHETER RELATED INFECTION [None]
  - DILATATION VENTRICULAR [None]
  - HEPATIC NECROSIS [None]
  - HEPATITIS TOXIC [None]
  - HEPATOTOXICITY [None]
  - MALAISE [None]
  - PULMONARY ARTERIAL PRESSURE ABNORMAL [None]
  - RIGHT VENTRICULAR HYPERTROPHY [None]
